FAERS Safety Report 25385671 (Version 4)
Quarter: 2025Q4

REPORT INFORMATION
  Report Type: Spontaneous
  Country: JP (occurrence: JP)
  Receive Date: 20250602
  Receipt Date: 20251113
  Transmission Date: 20260118
  Serious: Yes (Life-Threatening, Hospitalization)
  Sender: JAZZ
  Company Number: JP-JAZZ PHARMACEUTICALS-2025-JP-010225

PATIENT
  Age: 48 Year
  Sex: Female
  Weight: 55.4 kg

DRUGS (3)
  1. VYXEOS [Suspect]
     Active Substance: CYTARABINE\DAUNORUBICIN
     Indication: Acute myeloid leukaemia
     Dosage: 160 UNITS DAILY
     Dates: start: 20250319, end: 20250323
  2. CELECOXIB [Concomitant]
     Active Substance: CELECOXIB
     Indication: Acute myeloid leukaemia
     Dosage: 800 MILLIGRAM
     Dates: start: 20250317, end: 20250619
  3. ATOVAQUONE [Concomitant]
     Active Substance: ATOVAQUONE
     Indication: Infection prophylaxis
     Dosage: 3000 MILLIGRAM
     Dates: start: 20250317, end: 20250605

REACTIONS (3)
  - Cholecystitis infective [Recovering/Resolving]
  - Myelosuppression [Recovered/Resolved]
  - Febrile neutropenia [Recovered/Resolved]

NARRATIVE: CASE EVENT DATE: 20250325
